FAERS Safety Report 7242114-7 (Version None)
Quarter: 2011Q1

REPORT INFORMATION
  Report Type: 
  Country: None (occurrence: None)
  Receive Date: 20110124
  Receipt Date: 20101217
  Transmission Date: 20110831
  Serious: Yes (Other)
  Sender: FDA-Public Use
  Company Number: US-BAYER-2010-006926

PATIENT
  Age: 72 Year
  Sex: Female

DRUGS (1)
  1. EOVIST [Suspect]
     Indication: NUCLEAR MAGNETIC RESONANCE IMAGING
     Dosage: 7 ML, UNK
     Route: 042
     Dates: start: 20101215, end: 20101215

REACTIONS (8)
  - INCOHERENT [None]
  - CONVULSION [None]
  - ERYTHEMA [None]
  - PRURITUS [None]
  - UNRESPONSIVE TO STIMULI [None]
  - PALLOR [None]
  - LISTLESS [None]
  - DYSPNOEA [None]
